FAERS Safety Report 25272648 (Version 2)
Quarter: 2025Q2

REPORT INFORMATION
  Report Type: Spontaneous
  Country: CA (occurrence: None)
  Receive Date: 20250506
  Receipt Date: 20250512
  Transmission Date: 20250716
  Serious: Yes (Hospitalization, Other)
  Sender: ORION
  Company Number: CA-PFIZER INC-202500092732

PATIENT
  Age: 76 Year
  Sex: Female

DRUGS (3)
  1. METHOTREXATE [Suspect]
     Active Substance: METHOTREXATE
     Indication: Crohn^s disease
  2. INFLECTRA [Concomitant]
     Active Substance: INFLIXIMAB-DYYB
     Indication: Crohn^s disease
     Dates: start: 20250306
  3. INFLECTRA [Concomitant]
     Active Substance: INFLIXIMAB-DYYB
     Dates: start: 20250318

REACTIONS (8)
  - Hepatic cirrhosis [Unknown]
  - Pneumonia [Unknown]
  - Pleural effusion [Unknown]
  - Peripheral swelling [Unknown]
  - Wound secretion [Unknown]
  - Pulmonary oedema [Unknown]
  - Limb injury [Unknown]
  - Product use in unapproved indication [Unknown]
